FAERS Safety Report 6400604-0 (Version None)
Quarter: 2009Q4

REPORT INFORMATION
  Report Type: 
  Country: None (occurrence: None)
  Receive Date: 20091014
  Receipt Date: 20090928
  Transmission Date: 20100525
  Serious: Yes (Disabling)
  Sender: FDA-Public Use
  Company Number: PHHY2009CA41723

PATIENT
  Sex: Female

DRUGS (1)
  1. EXELON [Suspect]
     Indication: DEMENTIA ALZHEIMER'S TYPE
     Dosage: 5 MG/24 HOUR
     Route: 062
     Dates: start: 20090801, end: 20090921

REACTIONS (3)
  - HYPOKINESIA [None]
  - LETHARGY [None]
  - MUSCULAR WEAKNESS [None]
